FAERS Safety Report 22170887 (Version 1)
Quarter: 2023Q2

REPORT INFORMATION
  Report Type: Report from Study
  Country: SA (occurrence: SA)
  Receive Date: 20230404
  Receipt Date: 20230404
  Transmission Date: 20230722
  Serious: Yes (Hospitalization)
  Sender: FDA-Public Use
  Company Number: SA-JNJFOC-20230402670

PATIENT
  Age: 21 Year
  Sex: Female

DRUGS (1)
  1. INFLIXIMAB [Suspect]
     Active Substance: INFLIXIMAB
     Indication: Crohn^s disease
     Route: 041
     Dates: start: 20190101

REACTIONS (2)
  - Intestinal resection [Unknown]
  - Off label use [Unknown]

NARRATIVE: CASE EVENT DATE: 20230101
